FAERS Safety Report 9242999 (Version 1)
Quarter: 2013Q2

REPORT INFORMATION
  Report Type: Spontaneous
  Country: FR (occurrence: FR)
  Receive Date: 20130419
  Receipt Date: 20130419
  Transmission Date: 20140414
  Serious: Yes (Death, Other)
  Sender: FDA-Public Use
  Company Number: PHHY2013FR038132

PATIENT
  Age: 95 Year
  Sex: Female

DRUGS (1)
  1. HEPARIN [Suspect]
     Indication: PULMONARY EMBOLISM

REACTIONS (11)
  - Death [Fatal]
  - Disseminated intravascular coagulation [Recovering/Resolving]
  - Cyanosis [Recovering/Resolving]
  - Pulse absent [Recovered/Resolved]
  - Renal failure [Unknown]
  - Concomitant disease aggravated [Unknown]
  - Heparin-induced thrombocytopenia [Recovering/Resolving]
  - Arterial thrombosis [Recovering/Resolving]
  - Deep vein thrombosis [Recovering/Resolving]
  - Pain in extremity [Recovered/Resolved]
  - Necrosis [Recovering/Resolving]
